FAERS Safety Report 4283934-0 (Version None)
Quarter: 2004Q1

REPORT INFORMATION
  Report Type: 
  Country: None (occurrence: None)
  Receive Date: 20040115
  Receipt Date: 20030826
  Transmission Date: 20041129
  Serious: Yes (Death, Hospitalization)
  Sender: FDA-Public Use
  Company Number: NSADSS2003024278

PATIENT
  Age: 72 Year
  Sex: Female

DRUGS (1)
  1. DOXIL [Suspect]
     Indication: ENDOMETRIAL CANCER
     Dosage: 58 MG, INTRAVENOUS DRIP
     Route: 041

REACTIONS (1)
  - CONDITION AGGRAVATED [None]
